FAERS Safety Report 19197292 (Version 1)
Quarter: 2021Q2

REPORT INFORMATION
  Report Type: Report from Study
  Country: US (occurrence: US)
  Receive Date: 20210430
  Receipt Date: 20210430
  Transmission Date: 20210717
  Serious: No
  Sender: FDA-Public Use
  Company Number: US-ACADIA PHARMACEUTICALS INC.-ACA-2021-PIM-001315

PATIENT
  Sex: Female

DRUGS (9)
  1. BIOTIN [Concomitant]
     Active Substance: BIOTIN
  2. VITAMIN D3 [Concomitant]
     Active Substance: CHOLECALCIFEROL
  3. VITAMIN B12 [Concomitant]
     Active Substance: CYANOCOBALAMIN
  4. RYTARY [Concomitant]
     Active Substance: CARBIDOPA\LEVODOPA
  5. SINEMET [Concomitant]
     Active Substance: CARBIDOPA\LEVODOPA
  6. NUPLAZID [Suspect]
     Active Substance: PIMAVANSERIN TARTRATE
     Indication: PARKINSON^S DISEASE
     Dosage: 34 MILLIGRAM, QD
     Route: 048
     Dates: start: 20201223
  7. RIVASTIGMINE. [Concomitant]
     Active Substance: RIVASTIGMINE
  8. ARMOUR THYROID [Concomitant]
     Active Substance: THYROID, PORCINE
  9. CLONAZEPAM. [Concomitant]
     Active Substance: CLONAZEPAM

REACTIONS (1)
  - Confusional state [Not Recovered/Not Resolved]
